FAERS Safety Report 9753885 (Version 2)
Quarter: 2013Q4

REPORT INFORMATION
  Report Type: Spontaneous
  Country: US (occurrence: US)
  Receive Date: 20131213
  Receipt Date: 20131213
  Transmission Date: 20140711
  Serious: No
  Sender: FDA-Public Use
  Company Number: US-GILEAD-2010-0027167

PATIENT
  Sex: Female
  Weight: 97.52 kg

DRUGS (20)
  1. LETAIRIS [Suspect]
     Indication: PULMONARY ARTERIAL HYPERTENSION
     Route: 048
     Dates: start: 20090116
  2. REVATIO [Concomitant]
  3. COUMADIN [Concomitant]
  4. OXYGEN [Concomitant]
  5. ALDACTONE [Concomitant]
  6. BUMEX [Concomitant]
  7. ALTACE [Concomitant]
  8. COREG [Concomitant]
  9. GABAPENTIN [Concomitant]
  10. NEURONTIN [Concomitant]
  11. HYDROCODONE W/APAP [Concomitant]
  12. VICODIN ES [Concomitant]
  13. COMPAZINE [Concomitant]
  14. PHENERGAN [Concomitant]
  15. PYRIDIUM [Concomitant]
  16. ZOCOR [Concomitant]
  17. ZOLOFT [Concomitant]
  18. COLACE [Concomitant]
  19. NIACIN [Concomitant]
  20. VITAMIN B12 [Concomitant]

REACTIONS (1)
  - Hepatic steatosis [Unknown]
